FAERS Safety Report 4804755-3 (Version None)
Quarter: 2005Q4

REPORT INFORMATION
  Report Type: 
  Country: None (occurrence: None)
  Receive Date: 20051020
  Receipt Date: 20050906
  Transmission Date: 20060501
  Serious: Yes (Hospitalization)
  Sender: FDA-Public Use
  Company Number: US-ABBOTT-05P-163-0310611-00

PATIENT
  Sex: Female

DRUGS (3)
  1. ADALIMUMAB [Suspect]
     Indication: RHEUMATOID ARTHRITIS
     Route: 058
     Dates: start: 20001005
  2. ADALIMUMAB [Suspect]
     Route: 058
     Dates: start: 20051006
  3. PARACETAMOL [Concomitant]
     Indication: INFLUENZA LIKE ILLNESS
     Dates: start: 20050822, end: 20050902

REACTIONS (1)
  - WEST NILE VIRAL INFECTION [None]
